FAERS Safety Report 5029101-4 (Version None)
Quarter: 2006Q2

REPORT INFORMATION
  Report Type: 
  Country: None (occurrence: None)
  Receive Date: 20060613
  Receipt Date: 20060607
  Transmission Date: 20061013
  Serious: Yes (Death)
  Sender: FDA-Public Use
  Company Number: 2006-143576-NL

PATIENT
  Age: 78 Year
  Sex: Male

DRUGS (7)
  1. DANAPAROID SODIUM [Suspect]
     Indication: DISSEMINATED INTRAVASCULAR COAGULATION
     Dosage: INTRAVENOUS DRIP
     Route: 041
     Dates: start: 20050417, end: 20050422
  2. DANAPAROID SODIUM [Suspect]
     Indication: DISSEMINATED INTRAVASCULAR COAGULATION
     Dosage: INTRAVENOUS DRIP
     Route: 041
     Dates: start: 20050430, end: 20050504
  3. MENATETRENONE [Concomitant]
  4. MAGNESIUM OXIDE [Concomitant]
  5. FAMOTIDINE [Concomitant]
  6. FUROSEMIDE [Concomitant]
  7. ALLOPURINOL [Concomitant]

REACTIONS (8)
  - ACTIVATED PARTIAL THROMBOPLASTIN TIME PROLONGED [None]
  - ANAEMIA [None]
  - BLOOD LACTATE DEHYDROGENASE INCREASED [None]
  - BLOOD POTASSIUM INCREASED [None]
  - BLOOD UREA INCREASED [None]
  - PLATELET COUNT DECREASED [None]
  - PROTHROMBIN TIME PROLONGED [None]
  - SUBDURAL HAEMATOMA [None]
